FAERS Safety Report 10638630 (Version 1)
Quarter: 2014Q4

REPORT INFORMATION
  Report Type: Spontaneous
  Country: US (occurrence: US)
  Receive Date: 20141208
  Receipt Date: 20141208
  Transmission Date: 20150529
  Serious: No
  Sender: FDA-Public Use
  Company Number: US-SA-2014SA082650

PATIENT
  Age: 74 Year
  Sex: Female

DRUGS (2)
  1. FERRLECIT [Suspect]
     Active Substance: SODIUM FERRIC GLUCONATE COMPLEX
     Indication: ANAEMIA
     Dosage: 125MG IN 100ML NS
     Route: 065
     Dates: start: 20140617
  2. NORMAL SALINE [Concomitant]
     Active Substance: SODIUM CHLORIDE
     Dates: start: 20140617

REACTIONS (1)
  - Extravasation [Unknown]

NARRATIVE: CASE EVENT DATE: 20140617
